FAERS Safety Report 5194348-3 (Version None)
Quarter: 2006Q4

REPORT INFORMATION
  Report Type: 
  Country: None (occurrence: None)
  Receive Date: 20061228
  Receipt Date: 20061123
  Transmission Date: 20070319
  Serious: Yes (Hospitalization)
  Sender: FDA-Public Use
  Company Number: PA-PFIZER INC-2006145269

PATIENT
  Sex: Male
  Weight: 81.8 kg

DRUGS (7)
  1. SU-011,248 [Suspect]
     Indication: CLEAR CELL CARCINOMA OF THE KIDNEY
     Route: 048
  2. LEVOTHYROXINE SODIUM [Concomitant]
     Dosage: DAILY DOSE:5MG
  3. GLYBURIDE [Concomitant]
     Dosage: DAILY DOSE:5MG
     Dates: start: 20050101
  4. NEURONTIN [Concomitant]
     Dosage: TEXT:1 TABLET
     Dates: start: 20060101
  5. PREDNISONE TAB [Concomitant]
     Dosage: DAILY DOSE:5MG
     Route: 048
     Dates: start: 20060911, end: 20061122
  6. RANITIDINE [Concomitant]
     Route: 048
  7. GLICLAZIDE [Concomitant]
     Route: 048
     Dates: start: 20060913, end: 20061122

REACTIONS (6)
  - ADRENAL INSUFFICIENCY [None]
  - HYPOKALAEMIA [None]
  - KLEBSIELLA SEPSIS [None]
  - SEPSIS [None]
  - STUPOR [None]
  - UNRESPONSIVE TO STIMULI [None]
